FAERS Safety Report 15829077 (Version 1)
Quarter: 2019Q1

REPORT INFORMATION
  Report Type: Spontaneous
  Country: US (occurrence: US)
  Receive Date: 20190115
  Receipt Date: 20190115
  Transmission Date: 20190417
  Serious: No
  Sender: FDA-Public Use
  Company Number: US-ALLERGAN-1831557US

PATIENT
  Age: 72 Year
  Sex: Female
  Weight: 65.76 kg

DRUGS (17)
  1. RESTASIS [Concomitant]
     Active Substance: CYCLOSPORINE
     Dosage: UNK UNK, BID
     Dates: start: 20160726
  2. VALTREX [Concomitant]
     Active Substance: VALACYCLOVIR HYDROCHLORIDE
     Dosage: 500 MG, QD
     Dates: start: 201007
  3. KIRKLAND SIGNATURE FISH OIL [Concomitant]
     Dosage: UNK UNK, QD
  4. METAMUCIL [Concomitant]
     Active Substance: PLANTAGO SEED
     Dosage: UNK UNK, QD (2 TEASPOONS)
  5. LEXAPRO [Concomitant]
     Active Substance: ESCITALOPRAM OXALATE
     Dosage: 20 MG, BID
  6. FLAXSEED [Concomitant]
     Active Substance: FLAX SEED
     Dosage: 1400 MG, QD
  7. LEVOXYL [Concomitant]
     Active Substance: LEVOTHYROXINE SODIUM
     Dosage: 100 ?G, QD
     Dates: start: 201004
  8. ZETIA [Concomitant]
     Active Substance: EZETIMIBE
     Dosage: 10 MG, QD
     Dates: start: 201305
  9. RESTASIS [Suspect]
     Active Substance: CYCLOSPORINE
     Indication: DRY EYE
     Dosage: UNK, BID
     Route: 047
     Dates: start: 20180607
  10. WELCHOL [Concomitant]
     Active Substance: COLESEVELAM HYDROCHLORIDE
     Dosage: 625 MG, UNK
     Dates: start: 201307
  11. ASPIRIN. [Concomitant]
     Active Substance: ASPIRIN
     Dosage: 81 MG, QD
  12. LEVOXYL [Concomitant]
     Active Substance: LEVOTHYROXINE SODIUM
     Dosage: 100 ?G, QD
     Dates: start: 200707
  13. VITAMIN D3 [Concomitant]
     Active Substance: CHOLECALCIFEROL
     Dosage: 2000 ?G, QD
  14. FIORICET [Concomitant]
     Active Substance: ACETAMINOPHEN\BUTALBITAL\CAFFEINE
     Indication: HEADACHE
     Dosage: UNK
     Dates: start: 201406
  15. RESTASIS [Suspect]
     Active Substance: CYCLOSPORINE
     Dosage: UNK, BID
     Route: 047
     Dates: start: 201407
  16. CO-Q10-CHLORELLA [Concomitant]
     Dosage: 100 MG, QD
  17. VITAMIN B12 [Concomitant]
     Active Substance: CYANOCOBALAMIN
     Dosage: 1000 ?G, Q WEEK

REACTIONS (4)
  - Product dropper issue [Unknown]
  - Accidental exposure to product [Unknown]
  - Product packaging quantity issue [Unknown]
  - Incorrect dose administered [Unknown]

NARRATIVE: CASE EVENT DATE: 201806
